FAERS Safety Report 17162717 (Version 1)
Quarter: 2019Q4

REPORT INFORMATION
  Report Type: Spontaneous
  Country: BR (occurrence: BR)
  Receive Date: 20191217
  Receipt Date: 20191217
  Transmission Date: 20200122
  Serious: Yes (Other)
  Sender: FDA-Public Use
  Company Number: BR-STRIDES ARCOLAB LIMITED-2019SP012820

PATIENT
  Age: 53 Year
  Sex: Male

DRUGS (7)
  1. SULFAMETHOXAZOLE W/TRIMETHOPRIM [Interacting]
     Active Substance: SULFAMETHOXAZOLE\TRIMETHOPRIM
     Indication: PARACOCCIDIOIDES INFECTION
     Dosage: 800/160 MG, TWICE DAILY (EVERY 12 HRS)
     Route: 065
  2. TACROLIMUS. [Interacting]
     Active Substance: TACROLIMUS
     Indication: IMMUNOSUPPRESSANT DRUG THERAPY
     Dosage: 2 MILLIGRAM, EVERY 12 HRS
     Route: 065
     Dates: start: 201403
  3. METHYLPREDNISOLONE. [Suspect]
     Active Substance: METHYLPREDNISOLONE
     Indication: IMMUNOSUPPRESSANT DRUG THERAPY
     Dosage: UNK
     Route: 065
  4. TACROLIMUS. [Interacting]
     Active Substance: TACROLIMUS
     Indication: LIVER TRANSPLANT
     Dosage: UNK; DOSE WAS ADJUSTED
     Route: 065
  5. MYCOPHENOLATE MOFETIL. [Suspect]
     Active Substance: MYCOPHENOLATE MOFETIL
     Indication: IMMUNOSUPPRESSANT DRUG THERAPY
     Dosage: UNK
     Route: 065
  6. MYCOPHENOLATE MOFETIL. [Suspect]
     Active Substance: MYCOPHENOLATE MOFETIL
     Indication: LIVER TRANSPLANT
  7. METHYLPREDNISOLONE. [Suspect]
     Active Substance: METHYLPREDNISOLONE
     Indication: LIVER TRANSPLANT

REACTIONS (19)
  - Traumatic lung injury [Recovered/Resolved]
  - Renal tubular acidosis [Recovered/Resolved]
  - Liver disorder [Recovered/Resolved]
  - Arthritis [Recovered/Resolved]
  - Muscular weakness [Recovered/Resolved]
  - Oedema [Recovered/Resolved]
  - Skin disorder [Recovered/Resolved]
  - Drug interaction [Unknown]
  - Osteolysis [Recovered/Resolved]
  - Arthropathy [Recovered/Resolved]
  - Adrenal insufficiency [Recovered/Resolved]
  - Hypomagnesaemia [Recovered/Resolved]
  - Hyperkalaemia [Recovered/Resolved]
  - Reticuloendothelial dysfunction [Recovered/Resolved]
  - Inferior vena cava stenosis [Recovered/Resolved]
  - Musculoskeletal pain [Recovered/Resolved]
  - Paracoccidioides infection [Recovered/Resolved]
  - Subcutaneous abscess [Recovered/Resolved]
  - Ascites [Recovered/Resolved]

NARRATIVE: CASE EVENT DATE: 201409
